FAERS Safety Report 18389508 (Version 1)
Quarter: 2020Q4

REPORT INFORMATION
  Report Type: Report from Study
  Country: IN (occurrence: IN)
  Receive Date: 20201015
  Receipt Date: 20201015
  Transmission Date: 20210114
  Serious: Yes (Death, Other)
  Sender: FDA-Public Use
  Company Number: PHHY2017IN123186

PATIENT
  Age: 56 Year
  Sex: Male

DRUGS (1)
  1. GLIVEC [Suspect]
     Active Substance: IMATINIB MESYLATE
     Indication: CHRONIC MYELOID LEUKAEMIA
     Dosage: 600 MG, UNK (1 X 400MG + 2 X 100 MG)
     Route: 065

REACTIONS (3)
  - Pancytopenia [Unknown]
  - Death [Fatal]
  - Fibrosis [Unknown]

NARRATIVE: CASE EVENT DATE: 202006
